FAERS Safety Report 16597717 (Version 1)
Quarter: 2019Q3

REPORT INFORMATION
  Report Type: Spontaneous
  Country: FR (occurrence: FR)
  Receive Date: 20190719
  Receipt Date: 20190719
  Transmission Date: 20191004
  Serious: Yes (Life-Threatening, Hospitalization)
  Sender: FDA-Public Use
  Company Number: FR-PFIZER INC-2019304641

PATIENT
  Age: 53 Year
  Sex: Female
  Weight: 71 kg

DRUGS (6)
  1. PROPOFOL. [Suspect]
     Active Substance: PROPOFOL
     Indication: ANAESTHESIA
     Dosage: 150 MG, SINGLE
     Route: 042
     Dates: start: 20190613, end: 2019
  2. CEFAZOLIN [Suspect]
     Active Substance: CEFAZOLIN
     Indication: PROPHYLAXIS
     Dosage: 2 G, SINGLE
     Route: 042
     Dates: start: 20190613, end: 2019
  3. ATRACURIUM BESILATE [Suspect]
     Active Substance: ATRACURIUM BESYLATE
     Indication: ANAESTHESIA
     Dosage: 30 MG, SINGLE
     Route: 042
     Dates: start: 20190613, end: 2019
  4. SUFENTANIL [Suspect]
     Active Substance: SUFENTANIL
     Indication: ANAESTHESIA
     Dosage: 10 MG, SINGLE
     Route: 042
     Dates: start: 20190613, end: 2019
  5. NAROPEINE [Suspect]
     Active Substance: ROPIVACAINE HYDROCHLORIDE
     Indication: ANAESTHESIA
     Dosage: 2 MG, SINGLE
     Route: 037
     Dates: start: 20190613, end: 2019
  6. KETAMINE [Suspect]
     Active Substance: KETAMINE
     Indication: ANAESTHESIA
     Dosage: 20 MG, SINGLE
     Route: 042
     Dates: start: 20190613, end: 2019

REACTIONS (2)
  - Bronchospasm [Recovered/Resolved]
  - Hypersensitivity [Recovered/Resolved]

NARRATIVE: CASE EVENT DATE: 20190613
